FAERS Safety Report 9188720 (Version 4)
Quarter: 2013Q3

REPORT INFORMATION
  Report Type: Spontaneous
  Country: US (occurrence: US)
  Receive Date: 20130325
  Receipt Date: 20130829
  Transmission Date: 20140515
  Serious: Yes (Hospitalization)
  Sender: FDA-Public Use
  Company Number: US-B.I. PHARMACEUTICALS,INC./RIDGEFIELD-2013-BI-07014BP

PATIENT
  Age: 64 Year
  Sex: Male
  Weight: 145.1 kg

DRUGS (15)
  1. PRADAXA [Suspect]
     Indication: ATRIAL FIBRILLATION
     Dosage: 300 MG
     Route: 048
     Dates: start: 20120103
  2. FORTESTA [Concomitant]
     Route: 062
  3. EDARBI [Concomitant]
     Dosage: 60 MG
     Route: 048
  4. DIGOXIN [Concomitant]
     Dosage: 0.25 MG
     Route: 048
  5. METOPROLOL TARTRATE [Concomitant]
     Dosage: 200 MG
     Route: 048
  6. DILTIAZEM HCL [Concomitant]
     Dosage: 30 MG
     Route: 048
     Dates: start: 2009
  7. PROTONIX [Concomitant]
     Dosage: 40 MG
     Route: 048
  8. LORTAB [Concomitant]
     Route: 048
  9. DICLOFENAC POTASSIUM [Concomitant]
     Dosage: 150 MG
     Route: 048
  10. CRESTOR [Concomitant]
     Dosage: 20 MG
     Route: 048
     Dates: end: 2013
  11. LEXAPRO [Concomitant]
     Dosage: 20 MG
     Route: 048
  12. DOXAZOSIN MESYLATE [Concomitant]
     Dosage: 2 MG
     Route: 048
  13. TRICOR [Concomitant]
     Dates: end: 2013
  14. LOSARTAN [Concomitant]
  15. VALTURNA [Concomitant]

REACTIONS (1)
  - Haemoptysis [Unknown]
